FAERS Safety Report 18603541 (Version 1)
Quarter: 2020Q4

REPORT INFORMATION
  Report Type: Spontaneous
  Country: US (occurrence: US)
  Receive Date: 20201210
  Receipt Date: 20201210
  Transmission Date: 20210114
  Serious: Yes (Hospitalization)
  Sender: FDA-Public Use
  Company Number: None

PATIENT
  Age: 56 Year
  Sex: Female
  Weight: 134.5 kg

DRUGS (1)
  1. BAMLANIVIMAB. [Suspect]
     Active Substance: BAMLANIVIMAB
     Indication: COVID-19
     Route: 042
     Dates: start: 20201209, end: 20201209

REACTIONS (4)
  - Malaise [None]
  - Hyperhidrosis [None]
  - Skin discolouration [None]
  - Blood pressure decreased [None]

NARRATIVE: CASE EVENT DATE: 20201209
